FAERS Safety Report 22786148 (Version 2)
Quarter: 2024Q3

REPORT INFORMATION
  Report Type: Spontaneous
  Country: JP (occurrence: JP)
  Receive Date: 20230804
  Receipt Date: 20240919
  Transmission Date: 20241017
  Serious: Yes (Other)
  Sender: AMGEN
  Company Number: JP-AMGEN-JPNSP2023052186

PATIENT
  Age: 62 Year
  Sex: Male

DRUGS (1)
  1. BLINCYTO [Suspect]
     Active Substance: BLINATUMOMAB
     Indication: Acute lymphocytic leukaemia
     Dosage: 28 MICROGRAM, QD, 24 HOUR CV
     Route: 042
     Dates: start: 20230313, end: 20230702

REACTIONS (2)
  - Central nervous system leukaemia [Unknown]
  - Cytokine release syndrome [Recovered/Resolved]

NARRATIVE: CASE EVENT DATE: 20230315
